FAERS Safety Report 6298041-5 (Version None)
Quarter: 2009Q3

REPORT INFORMATION
  Report Type: 
  Country: None (occurrence: None)
  Receive Date: 20090804
  Receipt Date: 20090804
  Transmission Date: 20100115
  Serious: No
  Sender: FDA-Public Use
  Company Number: None

PATIENT
  Age: 31 Year
  Sex: Female
  Weight: 63.5036 kg

DRUGS (1)
  1. GENTAMICIN [Suspect]

REACTIONS (7)
  - BALANCE DISORDER [None]
  - DISORIENTATION [None]
  - MALLORY-WEISS SYNDROME [None]
  - NAUSEA [None]
  - NYSTAGMUS [None]
  - REBOUND EFFECT [None]
  - VERTIGO [None]
